FAERS Safety Report 25732224 (Version 1)
Quarter: 2025Q3

REPORT INFORMATION
  Report Type: Spontaneous
  Country: US (occurrence: US)
  Receive Date: 20250827
  Receipt Date: 20250827
  Transmission Date: 20251021
  Serious: Yes (Other)
  Sender: ELI LILLY AND COMPANY
  Company Number: US-ELI_LILLY_AND_COMPANY-US202508017236

PATIENT
  Age: 59 Year

DRUGS (13)
  1. INSULIN LISPRO [Suspect]
     Active Substance: INSULIN LISPRO
     Indication: Type 2 diabetes mellitus
     Route: 058
     Dates: start: 2024
  2. INSULIN LISPRO [Suspect]
     Active Substance: INSULIN LISPRO
     Indication: Type 2 diabetes mellitus
     Route: 058
     Dates: start: 2024
  3. INSULIN LISPRO [Suspect]
     Active Substance: INSULIN LISPRO
     Indication: Type 2 diabetes mellitus
     Route: 058
     Dates: start: 2024
  4. INSULIN LISPRO [Suspect]
     Active Substance: INSULIN LISPRO
     Indication: Type 2 diabetes mellitus
     Route: 058
     Dates: start: 2024
  5. INSULIN LISPRO [Suspect]
     Active Substance: INSULIN LISPRO
     Indication: Type 2 diabetes mellitus
     Route: 058
     Dates: start: 2024
  6. INSULIN LISPRO [Suspect]
     Active Substance: INSULIN LISPRO
     Route: 058
  7. INSULIN LISPRO [Suspect]
     Active Substance: INSULIN LISPRO
     Route: 058
  8. INSULIN LISPRO [Suspect]
     Active Substance: INSULIN LISPRO
     Route: 058
  9. INSULIN LISPRO [Suspect]
     Active Substance: INSULIN LISPRO
     Route: 058
  10. INSULIN LISPRO [Suspect]
     Active Substance: INSULIN LISPRO
     Route: 058
  11. INSULIN LISPRO [Suspect]
     Active Substance: INSULIN LISPRO
     Route: 058
  12. INSULIN LISPRO [Suspect]
     Active Substance: INSULIN LISPRO
     Route: 058
  13. INSULIN LISPRO [Suspect]
     Active Substance: INSULIN LISPRO
     Route: 058

REACTIONS (1)
  - Visual impairment [Unknown]
